FAERS Safety Report 5137121-4 (Version None)
Quarter: 2006Q4

REPORT INFORMATION
  Report Type: 
  Country: None (occurrence: None)
  Receive Date: 20061030
  Receipt Date: 20040625
  Transmission Date: 20070319
  Serious: No
  Sender: FDA-Public Use
  Company Number: US-GLAXOSMITHKLINE-A0516131A

PATIENT
  Age: 77 Year
  Sex: Female
  Weight: 43.2 kg

DRUGS (4)
  1. ADVAIR HFA [Suspect]
     Indication: DRUG USE FOR UNKNOWN INDICATION
     Dosage: 1PUFF TWICE PER DAY
     Route: 055
  2. ALLEGRA [Concomitant]
  3. ESTROGENS SOL/INJ [Concomitant]
  4. FOSAMAX [Concomitant]

REACTIONS (4)
  - DYSPHONIA [None]
  - EAR INFECTION [None]
  - PHARYNGOLARYNGEAL PAIN [None]
  - THROAT IRRITATION [None]
